FAERS Safety Report 19843061 (Version 1)
Quarter: 2021Q3

REPORT INFORMATION
  Report Type: Spontaneous
  Country: DE (occurrence: DE)
  Receive Date: 20210916
  Receipt Date: 20210916
  Transmission Date: 20211014
  Serious: Yes (Hospitalization)
  Sender: FDA-Public Use
  Company Number: DE-PFIZER INC-202101143511

PATIENT
  Age: 79 Year
  Sex: Female
  Weight: 74 kg

DRUGS (8)
  1. METOPROLOL. [Interacting]
     Active Substance: METOPROLOL
     Dosage: 47.5 MG, 1X/DAY, 1?0?0?0, RETARD?TABLET
     Route: 048
  2. RAMIPRIL. [Interacting]
     Active Substance: RAMIPRIL
     Dosage: 5 MG, 2X/DAY, 1?0?1?0, TABLET
     Route: 048
  3. ATORVASTATIN [Concomitant]
     Active Substance: ATORVASTATIN
     Dosage: 40 MG, 1X/DAY, 0?0?1?0, TABLET
     Route: 048
  4. XARELTO [Concomitant]
     Active Substance: RIVAROXABAN
     Dosage: 20 MG, 1X/DAY, 1?0?0?0, TABLET
     Route: 048
  5. AMLODIPINE BESILATE [Suspect]
     Active Substance: AMLODIPINE BESYLATE
     Dosage: 5 MG, 2X/DAY, 1?0?1?0, TABLET
     Route: 048
  6. HYDROCHLOROTHIAZID [Suspect]
     Active Substance: HYDROCHLOROTHIAZIDE
     Dosage: 25 MG, 1X/DAY, 1?0?0?0, TABLET
     Route: 048
  7. PANTOPRAZOLE [Concomitant]
     Active Substance: PANTOPRAZOLE
     Dosage: 40 MG, 1X/DAY, 1?0?0?0, TABLET
     Route: 048
  8. METAMIZOLE [Concomitant]
     Active Substance: METAMIZOLE
     Dosage: 500 MG, 1X/DAY, 1?0?0?0, TABLET
     Route: 048

REACTIONS (5)
  - Product monitoring error [Unknown]
  - Nausea [Unknown]
  - Labelled drug-drug interaction medication error [Unknown]
  - Dizziness [Unknown]
  - Gait disturbance [Unknown]
